FAERS Safety Report 20149165 (Version 1)
Quarter: 2021Q4

REPORT INFORMATION
  Report Type: Spontaneous
  Country: US (occurrence: US)
  Receive Date: 20211205
  Receipt Date: 20211205
  Transmission Date: 20220303
  Serious: No
  Sender: FDA-Public Use
  Company Number: US-SA-SAC20211202000281

PATIENT
  Sex: Female

DRUGS (16)
  1. DUPIXENT [Suspect]
     Active Substance: DUPILUMAB
     Indication: Asthma
     Dosage: 300 MG, QOW
     Route: 058
  2. REQUIP [Concomitant]
     Active Substance: ROPINIROLE HYDROCHLORIDE
  3. VITAMIN B1 [Concomitant]
     Active Substance: THIAMINE HYDROCHLORIDE
  4. VITAMIN D2 [Concomitant]
     Active Substance: ERGOCALCIFEROL
  5. WELLBUTRIN XL [Concomitant]
     Active Substance: BUPROPION HYDROCHLORIDE
  6. ROPINIROLE HYDROCHLORIDE [Concomitant]
     Active Substance: ROPINIROLE HYDROCHLORIDE
  7. FLOVENT HFA [Concomitant]
     Active Substance: FLUTICASONE PROPIONATE
  8. PROPRANOLOL HYDROCHLORIDE [Concomitant]
     Active Substance: PROPRANOLOL HYDROCHLORIDE
  9. ACETAMINOPHEN\OXYCODONE HYDROCHLORIDE [Concomitant]
     Active Substance: ACETAMINOPHEN\OXYCODONE HYDROCHLORIDE
  10. PROGESTERONE [Concomitant]
     Active Substance: PROGESTERONE
  11. NITROFURANTOIN MONOHYDRATE MACROCRYSTALS [Concomitant]
     Active Substance: NITROFURANTOIN\NITROFURANTOIN MONOHYDRATE
  12. GABAPENTIN [Concomitant]
     Active Substance: GABAPENTIN
  13. ALPRAZOLAM [Concomitant]
     Active Substance: ALPRAZOLAM
  14. MAGNESIUM [Concomitant]
     Active Substance: MAGNESIUM
  15. BIFIDOBACTERIUM ANIMALIS LACTIS [Concomitant]
     Active Substance: BIFIDOBACTERIUM ANIMALIS LACTIS
  16. HERBALS\TURMERIC [Concomitant]
     Active Substance: HERBALS\TURMERIC

REACTIONS (4)
  - Restless legs syndrome [Unknown]
  - Skin odour abnormal [Unknown]
  - Inappropriate schedule of product administration [Unknown]
  - Product use issue [Unknown]
